FAERS Safety Report 21825766 (Version 1)
Quarter: 2023Q1

REPORT INFORMATION
  Report Type: Spontaneous
  Country: US (occurrence: US)
  Receive Date: 20230105
  Receipt Date: 20230105
  Transmission Date: 20230418
  Serious: No
  Sender: FDA-Public Use
  Company Number: US-drreddys-SPO/USA/22/0158533

PATIENT
  Age: 14 Year
  Sex: Female

DRUGS (2)
  1. ZENATANE [Suspect]
     Active Substance: ISOTRETINOIN
     Indication: Acne
     Dosage: RMA: 18 AUGUST 2022, 11:01:55 AM, 15 NOVEMBER 2022, 02:13:36 PM.
  2. ZENATANE [Suspect]
     Active Substance: ISOTRETINOIN
     Dosage: RMA: 15 SEPTEMBER 2022, 10:11:41 AM, 14 OCTOBER 2022, 01:10:52 PM.

REACTIONS (1)
  - Treatment noncompliance [Unknown]
